FAERS Safety Report 10229469 (Version 1)
Quarter: 2014Q2

REPORT INFORMATION
  Report Type: Spontaneous
  Country: US (occurrence: None)
  Receive Date: 20140522
  Receipt Date: 20140522
  Transmission Date: 20141212
  Serious: Yes (Hospitalization)
  Sender: FDA-Public Use
  Company Number: 1000054083

PATIENT
  Sex: Female

DRUGS (3)
  1. TUDORZA [Suspect]
     Indication: CHRONIC OBSTRUCTIVE PULMONARY DISEASE
     Dosage: 800 MCG (400 MCG, 2 IN 1 D), RESPIRATORY (INHALATION)
     Route: 055
     Dates: start: 201312
  2. ALBUTEROL(ALBUTEROL) [Concomitant]
  3. FLOVENT(FLOVEN)(FLOVENT) [Concomitant]

REACTIONS (3)
  - Bronchitis [None]
  - Headache [None]
  - Pain in extremity [None]
